FAERS Safety Report 16323709 (Version 2)
Quarter: 2022Q1

REPORT INFORMATION
  Report Type: Spontaneous
  Country: ES (occurrence: ES)
  Receive Date: 20190517
  Receipt Date: 20220311
  Transmission Date: 20220423
  Serious: Yes (Hospitalization, Other)
  Sender: FDA-Public Use
  Company Number: ES-AUROBINDO-AUR-APL-2019-025650

PATIENT
  Age: 65 Year
  Sex: Female

DRUGS (5)
  1. ZOLPIDEM [Suspect]
     Active Substance: ZOLPIDEM TARTRATE
     Indication: Product used for unknown indication
     Dosage: 50 MILLIGRAM(10 MG 0-0-1 (AUTOLITICO 5 CPS))
     Route: 048
     Dates: start: 20171006, end: 20171006
  2. LORAZEPAM [Interacting]
     Active Substance: LORAZEPAM
     Indication: Product used for unknown indication
     Dosage: 10 MILLIGRAM(1 MG 1-1-1 (AUTOLITICO 10 CPS))
     Route: 048
     Dates: start: 20171006, end: 20171006
  3. ROSUVASTATIN [Concomitant]
     Active Substance: ROSUVASTATIN
     Indication: Product used for unknown indication
     Dosage: 5 MG CENA
     Route: 048
     Dates: start: 20140101
  4. INSULINA GLARGINA [Concomitant]
     Indication: Product used for unknown indication
     Dosage: 0-0-10
     Route: 058
     Dates: start: 20140101
  5. OMEPRAZOLE [Concomitant]
     Active Substance: OMEPRAZOLE
     Indication: Product used for unknown indication
     Dosage: 1 CP DIA
     Route: 048
     Dates: start: 20140101

REACTIONS (1)
  - Depressed level of consciousness [Recovered/Resolved]

NARRATIVE: CASE EVENT DATE: 20171007
